FAERS Safety Report 9293377 (Version 1)
Quarter: 2013Q2

REPORT INFORMATION
  Report Type: Spontaneous
  Country: US (occurrence: US)
  Receive Date: 20130516
  Receipt Date: 20130516
  Transmission Date: 20140414
  Serious: No
  Sender: FDA-Public Use
  Company Number: US-ASTRAZENECA-2013SE31638

PATIENT
  Age: 6 Year
  Sex: Male
  Weight: 18.6 kg

DRUGS (5)
  1. PULMICORT RESPULES [Suspect]
     Indication: ASTHMA
     Route: 055
  2. PULMICORT RESPULES [Suspect]
     Indication: ASTHMA
     Route: 055
  3. SYNTHROID [Concomitant]
     Indication: HYPOTHYROIDISM
     Route: 048
  4. SEIZEN [Concomitant]
     Indication: BLOOD GROWTH HORMONE ABNORMAL
     Dates: start: 2011
  5. XOPENEX [Concomitant]
     Indication: ASTHMA
     Route: 055
     Dates: start: 20130421

REACTIONS (4)
  - Asthma [Unknown]
  - Hypothyroidism [Unknown]
  - Growth retardation [Unknown]
  - Intentional drug misuse [Unknown]
